FAERS Safety Report 6733837-4 (Version None)
Quarter: 2010Q2

REPORT INFORMATION
  Report Type: 
  Country: None (occurrence: None)
  Receive Date: 20100520
  Receipt Date: 20100511
  Transmission Date: 20101027
  Serious: Yes (Hospitalization)
  Sender: FDA-Public Use
  Company Number: DE-ROCHE-674561

PATIENT
  Sex: Female

DRUGS (11)
  1. BONIVA [Suspect]
     Indication: OSTEOPOROSIS
     Route: 042
     Dates: start: 20090202, end: 20091028
  2. PROTAPHANE [Concomitant]
     Indication: DIABETES MELLITUS
     Route: 058
  3. ACTRAPID [Concomitant]
     Indication: DIABETES MELLITUS
     Dosage: 6-4-6
     Route: 058
  4. OMEPRAZOLE [Concomitant]
     Indication: GASTRITIS
     Dosage: 1-0-0
     Route: 048
  5. TORSEMIDE [Concomitant]
     Indication: GASTRITIS
     Dosage: 1-0-0
     Route: 048
  6. CALCIGEN D [Concomitant]
     Dosage: 1-0-1
  7. ALENDRONIC ACID [Concomitant]
     Dosage: ON SATURDAY
  8. KARVEZIDE [Concomitant]
     Dosage: 1-0-0
  9. BISOPROLOL [Concomitant]
     Dosage: 1/2-0-0
  10. SIMVASTATIN [Concomitant]
     Dosage: 0-0-1
  11. ASPIRIN [Concomitant]
     Dosage: 1-0-0

REACTIONS (2)
  - OSTEOARTHRITIS [None]
  - OSTEONECROSIS [None]
